FAERS Safety Report 20908550 (Version 1)
Quarter: 2022Q2

REPORT INFORMATION
  Report Type: Spontaneous
  Country: GB (occurrence: GB)
  Receive Date: 20220603
  Receipt Date: 20220603
  Transmission Date: 20220721
  Serious: Yes (Life-Threatening, Hospitalization)
  Sender: FDA-Public Use
  Company Number: GB-MHRA-MIDB-def3d8aa-e139-4e48-bab6-96ea3ea35370

PATIENT
  Sex: Female

DRUGS (1)
  1. CITALOPRAM [Suspect]
     Active Substance: CITALOPRAM HYDROBROMIDE
     Indication: Product used for unknown indication
     Dosage: 40MG
     Route: 048
     Dates: start: 20201228, end: 20210206

REACTIONS (1)
  - Intentional overdose [Unknown]

NARRATIVE: CASE EVENT DATE: 20210206
